FAERS Safety Report 20777439 (Version 3)
Quarter: 2022Q2

REPORT INFORMATION
  Report Type: Spontaneous
  Country: US (occurrence: None)
  Receive Date: 20220503
  Receipt Date: 20220601
  Transmission Date: 20220721
  Serious: No
  Sender: FDA-Public Use
  Company Number: 2022A166304

PATIENT
  Age: 858 Month
  Sex: Male

DRUGS (18)
  1. BUDESONIDE\FORMOTEROL\GLYCOPYRRONIUM [Suspect]
     Active Substance: BUDESONIDE\FORMOTEROL\GLYCOPYRRONIUM
     Indication: Dyspnoea
     Dosage: 160MCG/9MCG/4.8MCG AS 2 PUFFS TWICE A DAY
     Route: 055
  2. SYMBICORT [Suspect]
     Active Substance: BUDESONIDE\FORMOTEROL FUMARATE DIHYDRATE
     Dosage: 160-4.5 MCG/ ACT AEROSOL
     Route: 055
  3. BUDESONIDE [Suspect]
     Active Substance: BUDESONIDE
     Dosage: 0.6MG UNKNOWN
     Route: 055
  4. BUDESONIDE [Suspect]
     Active Substance: BUDESONIDE
     Dosage: 32 MCG/ ACT SUSPENSION NASAL SIG 1 SPRAY INTRANASALLY DAILY IN EACH NOSTRILL UNKNOWN
     Route: 055
  5. OXYCODONE [Concomitant]
     Active Substance: OXYCODONE
     Dosage: EVERY 6 HOURS AS NEEDED.1.0DF AS REQUIRED
     Route: 048
  6. DUPIXENT [Concomitant]
     Active Substance: DUPILUMAB
  7. PREDNISONE [Concomitant]
     Active Substance: PREDNISONE
     Route: 048
  8. ALBUTEROL [Concomitant]
     Active Substance: ALBUTEROL
     Dosage: 2.5MG/3 ML (0.083 PERCENT)
     Route: 055
  9. ALBUTEROL [Concomitant]
     Active Substance: ALBUTEROL
     Dosage: 5MG/ML (0.5 PERCENT)
     Route: 055
  10. ATIVAN [Concomitant]
     Active Substance: LORAZEPAM
     Route: 048
  11. CEFUROXIME AXETIL [Concomitant]
     Active Substance: CEFUROXIME AXETIL
     Route: 048
  12. DOXEPIN [Concomitant]
     Active Substance: DOXEPIN
     Route: 048
  13. HALOBETASOL PROPIONATE [Concomitant]
     Active Substance: HALOBETASOL PROPIONATE
     Route: 065
  14. HYDROXYZINE PAMOATE [Concomitant]
     Active Substance: HYDROXYZINE PAMOATE
  15. LINZESS [Concomitant]
     Active Substance: LINACLOTIDE
     Route: 048
  16. PANTOPRAZOLE SODIUM [Concomitant]
     Active Substance: PANTOPRAZOLE SODIUM
     Route: 048
  17. PROAIR HFA [Concomitant]
     Active Substance: ALBUTEROL SULFATE
     Dosage: 2 PUFFS EVERY 4 HOURS AS NEEDED
  18. ZOLPIDEM TARTRATE [Concomitant]
     Active Substance: ZOLPIDEM TARTRATE
     Route: 065

REACTIONS (7)
  - Dry throat [Not Recovered/Not Resolved]
  - Sinusitis [Unknown]
  - Dysphagia [Unknown]
  - Nasal polyps [Unknown]
  - Device use issue [Not Recovered/Not Resolved]
  - Device delivery system issue [Unknown]
  - Wrong technique in device usage process [Unknown]
